FAERS Safety Report 7772755-X (Version None)
Quarter: 2011Q3

REPORT INFORMATION
  Report Type: 
  Country: None (occurrence: None)
  Receive Date: 20110922
  Receipt Date: 20110301
  Transmission Date: 20111222
  Serious: No
  Sender: FDA-Public Use
  Company Number: US-ASTRAZENECA-2011SE11261

PATIENT
  Age: 54 Year
  Sex: Female
  Weight: 72.6 kg

DRUGS (7)
  1. SEROQUEL XR [Suspect]
     Indication: DEPRESSION
     Route: 048
     Dates: start: 20100101, end: 20110101
  2. SEROQUEL XR [Suspect]
     Route: 048
     Dates: start: 20110101
  3. SEROQUEL XR [Suspect]
     Indication: POST-TRAUMATIC STRESS DISORDER
     Route: 048
     Dates: start: 20100101, end: 20110101
  4. SEROQUEL XR [Suspect]
     Route: 048
     Dates: start: 20110101
  5. SEROQUEL XR [Suspect]
     Indication: BIPOLAR DISORDER
     Route: 048
     Dates: start: 20100101, end: 20110101
  6. SEROQUEL XR [Suspect]
     Route: 048
     Dates: start: 20110101
  7. IBUPROFEN [Concomitant]
     Indication: OSTEOARTHRITIS

REACTIONS (2)
  - WRONG TECHNIQUE IN DRUG USAGE PROCESS [None]
  - SOMNOLENCE [None]
